FAERS Safety Report 14348819 (Version 1)
Quarter: 2018Q1

REPORT INFORMATION
  Report Type: Spontaneous
  Country: NL (occurrence: NL)
  Receive Date: 20180104
  Receipt Date: 20180104
  Transmission Date: 20180509
  Serious: Yes (Hospitalization, Other)
  Sender: FDA-Public Use
  Company Number: NL-VISTAPHARM, INC.-VER201712-001597

PATIENT
  Age: 63 Year
  Sex: Female

DRUGS (15)
  1. MORPHINE [Suspect]
     Active Substance: MORPHINE
     Route: 037
  2. CLINDAMYCIN. [Suspect]
     Active Substance: CLINDAMYCIN
  3. AMITRIPTYLINE [Concomitant]
     Active Substance: AMITRIPTYLINE
     Indication: DISEASE RECURRENCE
  4. GABAPENTIN. [Concomitant]
     Active Substance: GABAPENTIN
  5. MORPHINE [Suspect]
     Active Substance: MORPHINE
     Indication: AMPUTATION STUMP PAIN
     Route: 037
     Dates: start: 1999
  6. PROPOFOL. [Concomitant]
     Active Substance: PROPOFOL
     Indication: INDUCTION OF ANAESTHESIA
  7. AMOXICILLIN/CLAVULANIC ACID [Suspect]
     Active Substance: AMOXICILLIN\CLAVULANIC ACID
  8. SEVOFLURANE. [Concomitant]
     Active Substance: SEVOFLURANE
     Indication: INDUCTION OF ANAESTHESIA
  9. SUFENTANIL [Concomitant]
     Active Substance: SUFENTANIL
     Indication: INDUCTION OF ANAESTHESIA
  10. ROCURONIUM [Concomitant]
     Active Substance: ROCURONIUM BROMIDE
     Indication: INDUCTION OF ANAESTHESIA
  11. AMOXICILLIN/CLAVULANIC ACID [Suspect]
     Active Substance: AMOXICILLIN\CLAVULANIC ACID
     Route: 042
  12. AMITRIPTYLINE [Concomitant]
     Active Substance: AMITRIPTYLINE
  13. METHADONE [Concomitant]
     Active Substance: METHADONE HYDROCHLORIDE
  14. BACLOFEN. [Concomitant]
     Active Substance: BACLOFEN
  15. AMITRIPTYLINE [Concomitant]
     Active Substance: AMITRIPTYLINE
     Indication: AMPUTATION STUMP PAIN

REACTIONS (2)
  - Drug withdrawal syndrome [Unknown]
  - Posterior reversible encephalopathy syndrome [Recovering/Resolving]
